FAERS Safety Report 23462021 (Version 1)
Quarter: 2024Q1

REPORT INFORMATION
  Report Type: Report from Study
  Country: US (occurrence: US)
  Receive Date: 20240131
  Receipt Date: 20240131
  Transmission Date: 20240409
  Serious: Yes (Other)
  Sender: FDA-Public Use
  Company Number: US-ABBVIE-5606083

PATIENT
  Age: 54 Year
  Sex: Female

DRUGS (5)
  1. SKYRIZI [Suspect]
     Active Substance: RISANKIZUMAB-RZAA
     Indication: Crohn^s disease
     Dosage: FORM STRENGTH: 2.4 MILLILITRE?WEEK 12
     Route: 058
     Dates: start: 20231003, end: 20231003
  2. SKYRIZI [Suspect]
     Active Substance: RISANKIZUMAB-RZAA
     Dosage: EVERY 8 WEEKS THEREAFTER?FORM STRENGTH: 2.4 MILLILITRE
     Route: 058
     Dates: start: 20231128
  3. SKYRIZI [Suspect]
     Active Substance: RISANKIZUMAB-RZAA
     Indication: Crohn^s disease
     Dosage: WEEK ZERO?FORM STRENGTH: 600 MG
     Route: 042
     Dates: start: 20230613, end: 20230613
  4. SKYRIZI [Suspect]
     Active Substance: RISANKIZUMAB-RZAA
     Indication: Crohn^s disease
     Dosage: WEEK FOUR?FORM STRENGTH: 600 MG
     Route: 042
     Dates: start: 20230711, end: 20230711
  5. SKYRIZI [Suspect]
     Active Substance: RISANKIZUMAB-RZAA
     Indication: Crohn^s disease
     Dosage: WEEK EIGHT?FORM STRENGTH: 600 MG
     Route: 042
     Dates: start: 20230905, end: 20230905

REACTIONS (11)
  - Deafness unilateral [Recovering/Resolving]
  - Abdominal pain [Not Recovered/Not Resolved]
  - Injection site discomfort [Unknown]
  - Fatigue [Not Recovered/Not Resolved]
  - Constipation [Not Recovered/Not Resolved]
  - Viral upper respiratory tract infection [Unknown]
  - Faeces soft [Recovering/Resolving]
  - General physical health deterioration [Not Recovered/Not Resolved]
  - Flatulence [Not Recovered/Not Resolved]
  - Asthenia [Not Recovered/Not Resolved]
  - Diarrhoea [Recovering/Resolving]

NARRATIVE: CASE EVENT DATE: 20240101
